FAERS Safety Report 22081403 (Version 1)
Quarter: 2023Q1

REPORT INFORMATION
  Report Type: Spontaneous
  Country: BR (occurrence: BR)
  Receive Date: 20230309
  Receipt Date: 20230309
  Transmission Date: 20230418
  Serious: Yes (Other)
  Sender: FDA-Public Use
  Company Number: BR-BAXTER-2023BAX014600

PATIENT
  Age: 22 Year
  Sex: Female

DRUGS (5)
  1. IRON [Suspect]
     Active Substance: IRON
     Indication: Postoperative care
     Dosage: 3 AMPOULES
     Route: 042
     Dates: start: 20230219
  2. SODIUM CHLORIDE [Suspect]
     Active Substance: SODIUM CHLORIDE
     Indication: Medication dilution
     Dosage: 500 ML
     Route: 042
     Dates: start: 20230219
  3. ENOXAPARIN [Suspect]
     Active Substance: ENOXAPARIN
     Indication: Anticoagulant therapy
     Dosage: 1 AMPOULE
     Route: 058
     Dates: start: 20230219, end: 20230219
  4. CEFAZOLIN SODIUM [Suspect]
     Active Substance: CEFAZOLIN SODIUM
     Indication: Antibiotic prophylaxis
     Dosage: 1 BOTTLE EVERY 6 HOURS
     Route: 042
     Dates: start: 20230218, end: 20230219
  5. KETOPROFEN [Suspect]
     Active Substance: KETOPROFEN
     Indication: Antiinflammatory therapy
     Dosage: 1 BOTTLE EVERY 12 HOURS
     Route: 042
     Dates: start: 20230218, end: 20230219

REACTIONS (4)
  - Hyperaemia [Recovered/Resolved]
  - Discomfort [Recovered/Resolved]
  - Oedema peripheral [Recovered/Resolved]
  - Off label use [Recovered/Resolved]

NARRATIVE: CASE EVENT DATE: 20230219
